FAERS Safety Report 20059035 (Version 1)
Quarter: 2021Q4

REPORT INFORMATION
  Report Type: Spontaneous
  Country: NZ (occurrence: NZ)
  Receive Date: 20211111
  Receipt Date: 20211111
  Transmission Date: 20220304
  Serious: Yes (Other)
  Sender: FDA-Public Use
  Company Number: NZ-ALLERGAN-2137997US

PATIENT
  Sex: Female

DRUGS (5)
  1. COMBIGAN [Suspect]
     Active Substance: BRIMONIDINE TARTRATE\TIMOLOL MALEATE
     Indication: Product used for unknown indication
  2. BIMATOPROST [Concomitant]
     Active Substance: BIMATOPROST
  3. NORTRIPTYLINE [Concomitant]
     Active Substance: NORTRIPTYLINE
     Route: 048
  4. QUINAPRIL [Concomitant]
     Active Substance: QUINAPRIL
     Route: 048
  5. INSULIN GLARGINE [Concomitant]
     Active Substance: INSULIN GLARGINE

REACTIONS (4)
  - Application site pain [Unknown]
  - Hypoglycaemia [Unknown]
  - Syncope [Unknown]
  - Hypothermia [Unknown]
